FAERS Safety Report 6865045-0 (Version None)
Quarter: 2010Q3

REPORT INFORMATION
  Report Type: 
  Country: None (occurrence: None)
  Receive Date: 20100720
  Receipt Date: 20100705
  Transmission Date: 20110219
  Serious: Yes (Other)
  Sender: FDA-Public Use
  Company Number: FKO201000279

PATIENT
  Age: 43 Year

DRUGS (3)
  1. ETOPOSIDE [Suspect]
     Indication: TESTIS CANCER
  2. CISPLATIN [Suspect]
     Indication: TESTIS CANCER
  3. BLEOMYCIN (MANUFACTURER UNKNOWN) ( BLEOMYCIN) ( BLEOMYCIN) [Suspect]
     Indication: TESTIS CANCER

REACTIONS (1)
  - CORONARY ARTERY THROMBOSIS [None]
